FAERS Safety Report 9217412 (Version 1)
Quarter: 2013Q2

REPORT INFORMATION
  Report Type: Spontaneous
  Country: US (occurrence: None)
  Receive Date: 20130404
  Receipt Date: 20130404
  Transmission Date: 20140414
  Serious: Yes (Other)
  Sender: FDA-Public Use
  Company Number: JPI-P-030806

PATIENT
  Age: 53 Year
  Sex: Male

DRUGS (1)
  1. XYREM (500 MILLIGRAM/ MILLILITERS, SOLUTION) (SODIUM OXYBATE) [Suspect]
     Indication: INSOMNIA
     Dosage: 4.5 (2.25 GM, 2 IN 1 D), ORAL
     Route: 048
     Dates: start: 20100513

REACTIONS (7)
  - Drug ineffective [None]
  - Sleep apnoea syndrome [None]
  - Insomnia [None]
  - Rebound effect [None]
  - Nasal congestion [None]
  - Sinus operation [None]
  - Drug withdrawal syndrome [None]
